FAERS Safety Report 17555403 (Version 5)
Quarter: 2020Q2

REPORT INFORMATION
  Report Type: Spontaneous
  Country: US (occurrence: US)
  Receive Date: 20200318
  Receipt Date: 20200630
  Transmission Date: 20200713
  Serious: Yes (Hospitalization)
  Sender: FDA-Public Use
  Company Number: US-VERTEX PHARMACEUTICALS-2020-004535

PATIENT
  Age: 13 Year
  Sex: Male

DRUGS (4)
  1. TRIKAFTA [Suspect]
     Active Substance: ELEXACAFTOR\IVACAFTOR\TEZACAFTOR
     Indication: CYSTIC FIBROSIS
     Dosage: 2 TABLETS(100MG ELEXACAFTOR/50MG TEZACAFTOR/75MG IVACAFTOR) AM AND 1 TABLET(150MG IVACAFTOR) PM
     Route: 048
     Dates: start: 20200125, end: 20200203
  2. ZOFRAN [Concomitant]
     Active Substance: ONDANSETRON HYDROCHLORIDE
  3. TRIKAFTA [Suspect]
     Active Substance: ELEXACAFTOR\IVACAFTOR\TEZACAFTOR
     Dosage: 2 TABS EVERY MORNING, 1 TABLET EVERY EVENING, BID
     Route: 048
     Dates: start: 20200210, end: 2020
  4. TRIKAFTA [Suspect]
     Active Substance: ELEXACAFTOR\IVACAFTOR\TEZACAFTOR
     Dosage: REDUCED DOSE OF AM PILL EVERY OTHER DAY
     Route: 048
     Dates: start: 202003

REACTIONS (11)
  - Hepatic enzyme increased [Not Recovered/Not Resolved]
  - Decreased appetite [Unknown]
  - Vomiting [Unknown]
  - Mycobacterial infection [Unknown]
  - Nausea [Not Recovered/Not Resolved]
  - Erosive oesophagitis [Unknown]
  - Blood glucose decreased [Not Recovered/Not Resolved]
  - Gastrostomy [Unknown]
  - Heart rate increased [Not Recovered/Not Resolved]
  - Productive cough [Not Recovered/Not Resolved]
  - Haematemesis [Unknown]

NARRATIVE: CASE EVENT DATE: 2020
